FAERS Safety Report 14424349 (Version 3)
Quarter: 2018Q1

REPORT INFORMATION
  Report Type: Report from Study
  Country: US (occurrence: US)
  Receive Date: 20180123
  Receipt Date: 20180201
  Transmission Date: 20180509
  Serious: Yes (Hospitalization)
  Sender: FDA-Public Use
  Company Number: US-JNJFOC-20180123427

PATIENT
  Age: 76 Year
  Sex: Female

DRUGS (13)
  1. METHOTREXATE. [Concomitant]
     Active Substance: METHOTREXATE
     Route: 048
     Dates: start: 20130312
  2. NASONEX [Concomitant]
     Active Substance: MOMETASONE FUROATE
     Indication: RHINITIS ALLERGIC
     Dosage: 2 SPRAYS EVERY DAY
     Route: 045
     Dates: start: 20131118
  3. BREO ELLIPTA [Concomitant]
     Active Substance: FLUTICASONE FUROATE\VILANTEROL TRIFENATATE
     Indication: ASTHMA
     Dosage: 1 PUFF EVERY DAY
     Route: 055
     Dates: start: 20160901
  4. SIMPONI ARIA [Suspect]
     Active Substance: GOLIMUMAB
     Indication: RHEUMATOID ARTHRITIS
     Route: 042
     Dates: start: 20161004
  5. TOVIAZ [Concomitant]
     Active Substance: FESOTERODINE FUMARATE
     Indication: HYPERTONIC BLADDER
     Route: 048
     Dates: start: 20130904
  6. FML FORTE [Concomitant]
     Active Substance: FLUOROMETHOLONE
     Indication: DRY EYE
     Route: 047
     Dates: start: 20171012
  7. LISINOPRIL. [Concomitant]
     Active Substance: LISINOPRIL
     Indication: HYPERTENSION
     Route: 048
     Dates: start: 20160901
  8. VENTOLIN HFA [Concomitant]
     Active Substance: ALBUTEROL SULFATE
     Indication: ASTHMA
     Dosage: 2 PUFFS EVERY DAY
     Route: 055
     Dates: start: 20130301
  9. ZETIA [Concomitant]
     Active Substance: EZETIMIBE
     Indication: BLOOD CHOLESTEROL ABNORMAL
     Route: 048
     Dates: start: 20170501
  10. GABAPENTIN. [Concomitant]
     Active Substance: GABAPENTIN
     Indication: PAIN
     Route: 048
     Dates: start: 20130301
  11. FOLIC ACID. [Concomitant]
     Active Substance: FOLIC ACID
     Indication: VITAMIN SUPPLEMENTATION
     Route: 048
     Dates: start: 20160312
  12. ATENOLOL. [Concomitant]
     Active Substance: ATENOLOL
     Indication: HYPERTENSION
     Route: 048
     Dates: start: 20130301
  13. ZOCOR [Concomitant]
     Active Substance: SIMVASTATIN
     Indication: BLOOD CHOLESTEROL ABNORMAL
     Route: 048
     Dates: start: 20170501

REACTIONS (1)
  - Sepsis [Recovered/Resolved]

NARRATIVE: CASE EVENT DATE: 20170630
